FAERS Safety Report 4352154-3 (Version None)
Quarter: 2004Q2

REPORT INFORMATION
  Report Type: 
  Country: None (occurrence: None)
  Receive Date: 20040428
  Receipt Date: 20040422
  Transmission Date: 20050107
  Serious: Yes (Death, Life-Threatening, Hospitalization)
  Sender: FDA-Public Use
  Company Number: 200413171BWH

PATIENT
  Age: 79 Year
  Sex: Female
  Weight: 77 kg

DRUGS (3)
  1. TRASYLOL [Suspect]
     Dosage: INTRAVENOUS
     Route: 042
     Dates: start: 20040107
  2. ASPIRIN [Concomitant]
  3. PLAVIX [Concomitant]

REACTIONS (5)
  - GRAFT THROMBOSIS [None]
  - POST PROCEDURAL COMPLICATION [None]
  - PROCEDURAL HYPOTENSION [None]
  - REFUSAL OF TREATMENT BY RELATIVE [None]
  - RENAL FAILURE [None]
